FAERS Safety Report 25509861 (Version 1)
Quarter: 2025Q3

REPORT INFORMATION
  Report Type: Spontaneous
  Country: US (occurrence: US)
  Receive Date: 20250703
  Receipt Date: 20250703
  Transmission Date: 20251020
  Serious: No
  Sender: RADIUS PHARM
  Company Number: US-RADIUS HEALTH INC.-2024US001189

PATIENT
  Age: 66 Year
  Sex: Female

DRUGS (1)
  1. TYMLOS [Suspect]
     Active Substance: ABALOPARATIDE
     Indication: Senile osteoporosis
     Route: 058
     Dates: start: 20240219

REACTIONS (9)
  - Product use complaint [Recovered/Resolved]
  - Arthropathy [Unknown]
  - Headache [Recovered/Resolved]
  - Arthralgia [Unknown]
  - Myalgia [Recovered/Resolved]
  - Product dose omission issue [Unknown]
  - Foot fracture [Unknown]
  - Hypoaesthesia [Unknown]
  - Nausea [Unknown]

NARRATIVE: CASE EVENT DATE: 20240201
